FAERS Safety Report 23458545 (Version 1)
Quarter: 2024Q1

REPORT INFORMATION
  Report Type: Spontaneous
  Country: CN (occurrence: CN)
  Receive Date: 20240130
  Receipt Date: 20240130
  Transmission Date: 20240410
  Serious: Yes (Hospitalization)
  Sender: FDA-Public Use
  Company Number: CN-ELI_LILLY_AND_COMPANY-CN202401012456

PATIENT
  Age: 24 Year
  Sex: Male
  Weight: 97 kg

DRUGS (1)
  1. DULAGLUTIDE [Suspect]
     Active Substance: DULAGLUTIDE
     Indication: Blood glucose increased
     Dosage: 1.5 MG, SINGLE
     Route: 058
     Dates: start: 20240108

REACTIONS (8)
  - Diabetic ketoacidosis [Recovering/Resolving]
  - Feeding disorder [Recovering/Resolving]
  - Body temperature decreased [Recovering/Resolving]
  - Mental disorder [Recovering/Resolving]
  - Lip dry [Recovering/Resolving]
  - Pedal pulse decreased [Recovering/Resolving]
  - Blood pressure increased [Recovering/Resolving]
  - Heart rate increased [Recovering/Resolving]

NARRATIVE: CASE EVENT DATE: 20240110
